FAERS Safety Report 20343228 (Version 1)
Quarter: 2022Q1

REPORT INFORMATION
  Report Type: Report from Study
  Country: US (occurrence: US)
  Receive Date: 20220117
  Receipt Date: 20220117
  Transmission Date: 20220423
  Serious: Yes (Death, Other)
  Sender: FDA-Public Use
  Company Number: US-ABBVIE-21K-163-3837643-00

PATIENT
  Sex: Female

DRUGS (2)
  1. VENCLEXTA [Suspect]
     Active Substance: VENETOCLAX
     Indication: Prophylaxis
     Dosage: TAKE 4 TABLET(S) BY MOUTH DAILY FOR 14 DAYS ON, THEN 14 DAYS OFF PER 28 DAY CYCLE
     Route: 048
  2. VENCLEXTA [Suspect]
     Active Substance: VENETOCLAX
     Dosage: TWO TABLETS DAILY
     Route: 048

REACTIONS (3)
  - Death [Fatal]
  - Transfusion [Unknown]
  - Off label use [Unknown]
